FAERS Safety Report 5854046-7 (Version None)
Quarter: 2008Q3

REPORT INFORMATION
  Report Type: 
  Country: None (occurrence: None)
  Receive Date: 20080822
  Receipt Date: 20080812
  Transmission Date: 20090109
  Serious: Yes (Hospitalization)
  Sender: FDA-Public Use
  Company Number: FR-MERCK-0808FRA00021

PATIENT
  Age: 44 Year
  Sex: Female

DRUGS (13)
  1. ISENTRESS [Suspect]
     Indication: HIV INFECTION
     Route: 048
     Dates: start: 20071227, end: 20080404
  2. ISENTRESS [Suspect]
     Route: 048
     Dates: start: 20080418
  3. ATORVASTATIN [Suspect]
     Indication: DYSLIPIDAEMIA
     Route: 048
     Dates: start: 20071227, end: 20080404
  4. ENFUVIRTIDE [Suspect]
     Indication: HIV INFECTION
     Route: 058
     Dates: start: 20071227, end: 20080404
  5. ENFUVIRTIDE [Suspect]
     Route: 058
     Dates: start: 20080418
  6. RITONAVIR [Suspect]
     Indication: HIV INFECTION
     Route: 048
     Dates: start: 20071227, end: 20080404
  7. RITONAVIR [Suspect]
     Route: 048
     Dates: start: 20080418
  8. DARUNAVIR [Suspect]
     Indication: HIV INFECTION
     Route: 048
     Dates: start: 20071227, end: 20080404
  9. DARUNAVIR [Suspect]
     Route: 048
     Dates: start: 20080418
  10. ETRAVIRINE [Suspect]
     Indication: HIV INFECTION
     Route: 048
     Dates: start: 20071227, end: 20080404
  11. ETRAVIRINE [Suspect]
     Route: 048
     Dates: start: 20080418
  12. CLOPIDOGREL BISULFATE [Concomitant]
     Indication: THROMBOSIS PROPHYLAXIS
     Route: 048
  13. ASPIRIN [Concomitant]
     Indication: THROMBOSIS PROPHYLAXIS
     Route: 048

REACTIONS (5)
  - PNEUMOCOCCAL SEPSIS [None]
  - PNEUMONIA PNEUMOCOCCAL [None]
  - PYELONEPHRITIS ACUTE [None]
  - RENAL FAILURE ACUTE [None]
  - RHABDOMYOLYSIS [None]
